FAERS Safety Report 9957209 (Version 1)
Quarter: 2014Q1

REPORT INFORMATION
  Report Type: Report from Study
  Country: US (occurrence: US)
  Receive Date: 20140304
  Receipt Date: 20140304
  Transmission Date: 20141002
  Serious: No
  Sender: FDA-Public Use
  Company Number: US-ABBVIE-13P-163-1098085-00

PATIENT
  Sex: Male
  Weight: 124.85 kg

DRUGS (3)
  1. HUMIRA [Suspect]
     Indication: PSORIASIS
     Dates: start: 201101, end: 201106
  2. AMBIEN [Concomitant]
     Indication: SLEEP DISORDER THERAPY
  3. MVI [Concomitant]
     Indication: SUPPLEMENTATION THERAPY

REACTIONS (7)
  - Pain [Recovered/Resolved]
  - Neuropathy peripheral [Not Recovered/Not Resolved]
  - Localised infection [Recovered/Resolved]
  - Psoriasis [Recovered/Resolved]
  - Pain [Recovered/Resolved]
  - Pain [Recovered/Resolved]
  - Arthralgia [Recovered/Resolved]
